FAERS Safety Report 13305055 (Version 1)
Quarter: 2017Q1

REPORT INFORMATION
  Report Type: Spontaneous
  Country: US (occurrence: US)
  Receive Date: 20170307
  Receipt Date: 20170307
  Transmission Date: 20170428
  Serious: No
  Sender: FDA-Public Use
  Company Number: None

PATIENT
  Age: 56 Year
  Sex: Female

DRUGS (4)
  1. DAKLINZA [Suspect]
     Active Substance: DACLATASVIR
     Indication: BIPOLAR DISORDER
  2. DAKLINZA [Suspect]
     Active Substance: DACLATASVIR
     Indication: CHRONIC HEPATITIS C
  3. SOVALDI [Concomitant]
     Active Substance: SOFOSBUVIR
  4. DAKLINZA [Suspect]
     Active Substance: DACLATASVIR
     Indication: ANXIETY DISORDER

REACTIONS (3)
  - Vomiting [None]
  - Chills [None]
  - Nausea [None]

NARRATIVE: CASE EVENT DATE: 20170306
